FAERS Safety Report 18287947 (Version 1)
Quarter: 2020Q3

REPORT INFORMATION
  Report Type: Spontaneous
  Country: GB (occurrence: GB)
  Receive Date: 20200921
  Receipt Date: 20200921
  Transmission Date: 20201103
  Serious: Yes (Hospitalization)
  Sender: FDA-Public Use
  Company Number: GB-TEVA-2020-GB-1828944

PATIENT
  Age: 48 Year
  Sex: Female
  Weight: 59 kg

DRUGS (1)
  1. NITROFURANTOIN. [Suspect]
     Active Substance: NITROFURANTOIN
     Indication: GENITOURINARY TRACT INFECTION
     Dosage: 200 MILLIGRAM
     Route: 048
     Dates: start: 20200801, end: 20200817

REACTIONS (9)
  - Pyrexia [Unknown]
  - Urosepsis [Unknown]
  - Eye swelling [Recovering/Resolving]
  - Pharyngeal swelling [Recovering/Resolving]
  - Swelling face [Unknown]
  - Hypotension [Unknown]
  - Wheezing [Unknown]
  - Chills [Unknown]
  - Feeling cold [Unknown]

NARRATIVE: CASE EVENT DATE: 20200818
